FAERS Safety Report 26134316 (Version 1)
Quarter: 2025Q4

REPORT INFORMATION
  Report Type: Other
  Country: EU (occurrence: EU)
  Receive Date: 20251209
  Receipt Date: 20251209
  Transmission Date: 20260118
  Serious: Yes (Other)
  Sender: ZYDUS PHARM
  Company Number: None

PATIENT

DRUGS (3)
  1. CELECOXIB [Suspect]
     Active Substance: CELECOXIB
     Indication: Sciatica
     Dosage: 200 MILLIGRAM, QD
     Route: 048
     Dates: start: 20250821
  2. AMLODIPINO CINFA [Concomitant]
     Indication: Blood pressure increased
     Dosage: 5 MILLIGRAM, QD
     Route: 048
     Dates: start: 20221117
  3. OMEPRAZOL PENSA [OMEPRAZOLE MAGNESIUM] [Concomitant]
     Indication: Intervertebral disc displacement
     Dosage: 20 MILLIGRAM, QD
     Route: 048
     Dates: start: 20250321

REACTIONS (2)
  - Malaise [Recovered/Resolved]
  - Palpitations [Recovered/Resolved]

NARRATIVE: CASE EVENT DATE: 20250821
